FAERS Safety Report 6228403-3 (Version None)
Quarter: 2009Q2

REPORT INFORMATION
  Report Type: 
  Country: None (occurrence: None)
  Receive Date: 20090612
  Receipt Date: 20090601
  Transmission Date: 20091009
  Serious: Yes (Other)
  Sender: FDA-Public Use
  Company Number: PT-GENENTECH-284465

PATIENT
  Age: 68 Year
  Sex: Female

DRUGS (1)
  1. HERCEPTIN [Suspect]
     Indication: BREAST CANCER
     Dosage: UNK
     Route: 065

REACTIONS (9)
  - ADVERSE DRUG REACTION [None]
  - APHASIA [None]
  - ASTHENIA [None]
  - DYSPNOEA [None]
  - EYELID FUNCTION DISORDER [None]
  - MALAISE [None]
  - MIGRAINE [None]
  - PYREXIA [None]
  - TACHYCARDIA [None]
